FAERS Safety Report 6611170-9 (Version None)
Quarter: 2010Q1

REPORT INFORMATION
  Report Type: 
  Country: None (occurrence: None)
  Receive Date: 20100301
  Receipt Date: 20100301
  Transmission Date: 20100710
  Serious: Yes (Life-Threatening)
  Sender: FDA-Public Use
  Company Number: None

PATIENT
  Age: 61 Year
  Sex: Female
  Weight: 87.9978 kg

DRUGS (1)
  1. MELOXICAM [Suspect]
     Indication: INFLAMMATION
     Dosage: TABLETS 1 PER DAY PO
     Route: 048

REACTIONS (2)
  - DOCUMENTED HYPERSENSITIVITY TO ADMINISTERED DRUG [None]
  - MEDICATION ERROR [None]
